FAERS Safety Report 12822477 (Version 1)
Quarter: 2016Q4

REPORT INFORMATION
  Report Type: Spontaneous
  Country: US (occurrence: US)
  Receive Date: 20161006
  Receipt Date: 20161006
  Transmission Date: 20170207
  Serious: No
  Sender: FDA-Public Use
  Company Number: US-SHIONOGI, INC-2016000715

PATIENT
  Sex: Female
  Weight: 54.42 kg

DRUGS (4)
  1. OSPHENA [Suspect]
     Active Substance: OSPEMIFENE
     Indication: VULVOVAGINAL DRYNESS
     Dosage: UNK, EVERY OTHER DAY
     Route: 048
  2. XANAX [Concomitant]
     Active Substance: ALPRAZOLAM
     Indication: SLEEP DISORDER
     Dosage: 0.5 MG, PRN
     Route: 048
  3. OSPHENA [Suspect]
     Active Substance: OSPEMIFENE
     Dosage: UNK, 3 DAY A WEEK
  4. OSPHENA [Suspect]
     Active Substance: OSPEMIFENE
     Indication: DYSPAREUNIA
     Dosage: 20 MG, QOD, ON AND OFF FOR A YEAR
     Route: 048
     Dates: start: 201503, end: 201603

REACTIONS (4)
  - Off label use [Unknown]
  - Accidental underdose [Unknown]
  - Vaginal disorder [Recovered/Resolved]
  - Muscle spasms [Recovered/Resolved]

NARRATIVE: CASE EVENT DATE: 2015
